FAERS Safety Report 5522221-7 (Version None)
Quarter: 2007Q4

REPORT INFORMATION
  Report Type: 
  Country: None (occurrence: None)
  Receive Date: 20071120
  Receipt Date: 20071106
  Transmission Date: 20080405
  Serious: Yes (Other)
  Sender: FDA-Public Use
  Company Number: US-ELI_LILLY_AND_COMPANY-US200711001306

PATIENT
  Sex: Female

DRUGS (3)
  1. FORTEO [Suspect]
     Indication: OSTEOPENIA
     Dates: start: 20051101
  2. CRESTOR [Concomitant]
  3. LODINE [Concomitant]
     Indication: ANTIINFLAMMATORY THERAPY
     Dosage: 400 MG, 2/D

REACTIONS (8)
  - BONE EROSION [None]
  - ENDODONTIC PROCEDURE [None]
  - LOOSE TOOTH [None]
  - NEURALGIA [None]
  - ORTHOSTATIC HYPOTENSION [None]
  - OSTEONECROSIS [None]
  - PAIN IN JAW [None]
  - RESORPTION BONE INCREASED [None]
